FAERS Safety Report 6023733-2 (Version None)
Quarter: 2008Q4

REPORT INFORMATION
  Report Type: 
  Country: None (occurrence: None)
  Receive Date: 20081223
  Receipt Date: 20081209
  Transmission Date: 20090506
  Serious: Yes (Death)
  Sender: FDA-Public Use
  Company Number: 2008AL012396

PATIENT
  Age: 39 Year
  Sex: Male

DRUGS (5)
  1. DIAZEPAM TAB [Suspect]
  2. DIAMORPHINE [Concomitant]
  3. COCAINE [Concomitant]
  4. SUBUTEX [Concomitant]
  5. ALCOHOL [Concomitant]

REACTIONS (4)
  - ACCIDENTAL DEATH [None]
  - MULTIPLE DRUG OVERDOSE ACCIDENTAL [None]
  - NERVOUS SYSTEM DISORDER [None]
  - SNORING [None]
